FAERS Safety Report 18872857 (Version 1)
Quarter: 2021Q1

REPORT INFORMATION
  Report Type: Spontaneous
  Country: EG (occurrence: EG)
  Receive Date: 20210210
  Receipt Date: 20210210
  Transmission Date: 20210420
  Serious: Yes (Hospitalization, Other)
  Sender: FDA-Public Use
  Company Number: US-MSD-1207USA010286

PATIENT
  Age: 56 Year
  Sex: Male

DRUGS (7)
  1. PLETAAL [Concomitant]
     Active Substance: CILOSTAZOL
  2. GENURIN [Concomitant]
  3. THIOCTIC ACID [Concomitant]
     Active Substance: .ALPHA.-LIPOIC ACID
     Indication: NEURITIS
  4. EXFORGE [Suspect]
     Active Substance: AMLODIPINE BESYLATE\VALSARTAN
     Indication: HYPERTENSION
     Dosage: 1 DF, DAILY
     Route: 048
     Dates: start: 20110602
  5. ATORVASTATIN [Concomitant]
     Active Substance: ATORVASTATIN
  6. SINEMET [Concomitant]
     Active Substance: CARBIDOPA\LEVODOPA
     Route: 048
  7. JANUMET [Suspect]
     Active Substance: METFORMIN HYDROCHLORIDE\SITAGLIPTIN PHOSPHATE
     Indication: DIABETES MELLITUS

REACTIONS (6)
  - Blood pressure fluctuation [Unknown]
  - Effusion [Unknown]
  - Paraesthesia [Unknown]
  - Peptic ulcer [Unknown]
  - Cerebrovascular accident [Unknown]
  - Hypotonia [Unknown]

NARRATIVE: CASE EVENT DATE: 20120307
